FAERS Safety Report 5694243-7 (Version None)
Quarter: 2008Q2

REPORT INFORMATION
  Report Type: 
  Country: None (occurrence: None)
  Receive Date: 20080402
  Receipt Date: 20080326
  Transmission Date: 20081010
  Serious: Yes (Death)
  Sender: FDA-Public Use
  Company Number: E2020-02296-SPO-JP

PATIENT
  Age: 79 Year
  Sex: Female
  Weight: 33 kg

DRUGS (7)
  1. ARICEPT [Suspect]
     Indication: DEMENTIA
     Dosage: ORAL, 5 MG, 1 IN 1 D, ORAL
     Route: 048
     Dates: start: 20071227, end: 20080118
  2. ARICEPT [Suspect]
     Indication: DEMENTIA
     Dosage: ORAL, 5 MG, 1 IN 1 D, ORAL
     Route: 048
     Dates: start: 20080119
  3. GASTER (FAMOTIDNE) [Suspect]
     Indication: NAUSEA
     Dosage: 20 MG, ORAL
     Route: 048
     Dates: start: 20080111
  4. BAYASPIRIN (ACETLYSALICYLIC ACID) [Suspect]
     Dosage: 100 MG, ORAL
     Route: 048
     Dates: start: 20080119
  5. YOKUKAN-SAN (YOKUKAN-SAN) [Suspect]
     Indication: DELIRIUM
     Dosage: 5 GM, ORAL
     Route: 048
     Dates: start: 20080125
  6. HARTMAN (LACTEC) [Concomitant]
  7. ZANTAC [Concomitant]

REACTIONS (6)
  - ANOREXIA [None]
  - DAYDREAMING [None]
  - DECUBITUS ULCER [None]
  - DEHYDRATION [None]
  - DYSPHAGIA [None]
  - PURULENT DISCHARGE [None]
